FAERS Safety Report 10407504 (Version 1)
Quarter: 2014Q1

REPORT INFORMATION
  Report Type: Spontaneous
  Country: US (occurrence: None)
  Receive Date: 20130225
  Receipt Date: 20130225
  Transmission Date: 20141002
  Serious: Yes (Hospitalization, Other)
  Sender: FDA-Public Use
  Company Number: 364009N

PATIENT
  Age: 15 Year
  Sex: Female
  Weight: 89.7 kg

DRUGS (2)
  1. VICTOZA (LIRAGLUTIDE) SOLUTION FOR INJECTION, 6MG/ML [Suspect]
     Indication: TYPE 1 DIABETES MELLITUS
     Route: 058
     Dates: start: 20121101, end: 20121104
  2. KLONOPIN (CLONAZEPAM) [Concomitant]

REACTIONS (1)
  - Anaphylactic reaction [None]
